FAERS Safety Report 4444670-0 (Version None)
Quarter: 2004Q3

REPORT INFORMATION
  Report Type: 
  Country: None (occurrence: None)
  Receive Date: 20040907
  Receipt Date: 20040824
  Transmission Date: 20050211
  Serious: Yes (Hospitalization, Other)
  Sender: FDA-Public Use
  Company Number: 2004059895

PATIENT
  Age: 45 Year
  Sex: Female

DRUGS (8)
  1. PHENYTOIN [Suspect]
     Indication: GRAND MAL CONVULSION
     Dosage: 400 MG (200 MG 2 IN 1 D)
  2. CAPECITABINE (CAPECITABINE) [Suspect]
     Indication: BREAST CANCER
     Dosage: 3000 MG (1500 MG 2 IN 1 D)
  3. CLOBAZAM (CLOBAZAM) [Concomitant]
  4. VALPROATE SODIUM [Concomitant]
  5. RANITIDINE [Concomitant]
  6. MORPHINE [Concomitant]
  7. ACETAMINOPHEN [Concomitant]
  8. FLUTICASONE PROPIONATE [Concomitant]

REACTIONS (8)
  - ANTICONVULSANT DRUG LEVEL ABOVE THERAPEUTIC [None]
  - ASTHENIA [None]
  - ATAXIA [None]
  - BREAST CANCER FEMALE [None]
  - DIZZINESS [None]
  - DYSARTHRIA [None]
  - FALL [None]
  - MEDICATION ERROR [None]
